FAERS Safety Report 15311392 (Version 1)
Quarter: 2018Q3

REPORT INFORMATION
  Report Type: Spontaneous
  Country: US (occurrence: US)
  Receive Date: 20180814
  Receipt Date: 20180814
  Transmission Date: 20181010
  Serious: Yes (Other)
  Sender: FDA-Public Use
  Company Number: None

PATIENT
  Age: 7 Week
  Sex: Male
  Weight: 78.4 kg

DRUGS (1)
  1. POTASSIUM CHLORIDE INJECTION [Suspect]
     Active Substance: POTASSIUM CHLORIDE
     Indication: HYPOKALAEMIA
     Dosage: ?          OTHER FREQUENCY:4 DOSES OF 10MEQ;?
     Route: 041
     Dates: start: 20180811, end: 20180811

REACTIONS (1)
  - Infusion site pain [None]

NARRATIVE: CASE EVENT DATE: 20180811
